FAERS Safety Report 7287339-X (Version None)
Quarter: 2011Q1

REPORT INFORMATION
  Report Type: 
  Country: None (occurrence: None)
  Receive Date: 20110207
  Receipt Date: 20110207
  Transmission Date: 20110831
  Serious: No
  Sender: FDA-Public Use
  Company Number: None

PATIENT
  Age: 63 Year
  Sex: Female
  Weight: 62.1428 kg

DRUGS (1)
  1. AVELOX [Suspect]
     Indication: BRONCHITIS
     Dosage: 400 MG 1 PER DAY PO
     Route: 048
     Dates: start: 20110128, end: 20110130

REACTIONS (5)
  - DYSGEUSIA [None]
  - VOMITING [None]
  - HYPOAESTHESIA ORAL [None]
  - DIARRHOEA [None]
  - TREMOR [None]
